FAERS Safety Report 8046117-4 (Version None)
Quarter: 2012Q1

REPORT INFORMATION
  Report Type: 
  Country: None (occurrence: None)
  Receive Date: 20120113
  Receipt Date: 20120110
  Transmission Date: 20120608
  Serious: No
  Sender: FDA-Public Use
  Company Number: US-PFIZER INC-2012007582

PATIENT
  Sex: Female
  Weight: 68.027 kg

DRUGS (7)
  1. PROCARDIA XL [Suspect]
     Dosage: TWO TABLETS OF 10 MG IN THE MORNING AND ONE TABLET OF 10 MG IN THE EVENING
  2. PROCARDIA XL [Suspect]
     Dosage: 10 MG, 3X/DAY
  3. VITAMIN B-12 [Concomitant]
     Indication: NERVOUS SYSTEM DISORDER
     Dosage: 500 MG, DAILY
  4. LOPRESSOR [Concomitant]
     Indication: BLOOD PRESSURE ABNORMAL
     Dosage: 10 MG, 3X/DAY
  5. PROCARDIA XL [Suspect]
     Indication: BLOOD PRESSURE ABNORMAL
     Dosage: 30 MG, 1X/DAY
  6. XANAX [Suspect]
     Dosage: UNK
  7. ALPRAZOLAM [Suspect]
     Indication: NERVOUS SYSTEM DISORDER
     Dosage: 0.5 MG, DAILY

REACTIONS (5)
  - PRESYNCOPE [None]
  - ANXIETY [None]
  - PARAESTHESIA [None]
  - FATIGUE [None]
  - ASTHENIA [None]
